FAERS Safety Report 9024657 (Version 1)
Quarter: 2013Q1

REPORT INFORMATION
  Report Type: Spontaneous
  Country: ES (occurrence: ES)
  Receive Date: 20130120
  Receipt Date: 20130120
  Transmission Date: 20140127
  Serious: Yes (Other)
  Sender: FDA-Public Use
  Company Number: PHHY2013ES004720

PATIENT
  Age: 69 Year
  Sex: Male

DRUGS (5)
  1. FLUDARABINE [Suspect]
     Indication: CHRONIC LYMPHOCYTIC LEUKAEMIA
     Dosage: UNK UKN, UNK
  2. FLUDARABINE [Suspect]
     Dosage: 25 MG/M2, UNK
     Route: 042
  3. MITOXANTRONE [Suspect]
     Indication: CHRONIC LYMPHOCYTIC LEUKAEMIA
     Dosage: UNK UKN, UNK
  4. CYCLOPHOSPHAMIDE [Suspect]
     Indication: CHRONIC LYMPHOCYTIC LEUKAEMIA
     Dosage: UNK UKN, UNK
  5. CYCLOPHOSPHAMIDE [Suspect]
     Dosage: 200 MG/M2, UNK
     Route: 042

REACTIONS (2)
  - Chronic lymphocytic leukaemia recurrent [Unknown]
  - Bladder cancer [Unknown]
